FAERS Safety Report 7735477-7 (Version None)
Quarter: 2011Q3

REPORT INFORMATION
  Report Type: 
  Country: None (occurrence: None)
  Receive Date: 20110907
  Receipt Date: 20110902
  Transmission Date: 20111222
  Serious: Yes (Other)
  Sender: FDA-Public Use
  Company Number: ZA-BAYER-2011-081813

PATIENT
  Age: 37 Year
  Sex: Male

DRUGS (8)
  1. LAMICTAL [Concomitant]
     Dosage: 100 MG, QD
  2. LYRICA [Concomitant]
     Dosage: 75 MG, BID
  3. MIRTAZAPINE [Concomitant]
     Dosage: 45 MG, QD
  4. SUBUTEX [Concomitant]
     Dosage: 8 MG, QD
     Dates: start: 20060130
  5. SEROQUEL [Concomitant]
     Dosage: 300 MG, QD
  6. BETASERON [Suspect]
     Indication: RELAPSING-REMITTING MULTIPLE SCLEROSIS
     Dosage: 8 MIU, QOD
     Route: 058
     Dates: start: 20060130
  7. VALPROIC ACID [Concomitant]
     Dosage: 400 MG, BID
  8. ALCHERA [Concomitant]
     Dosage: 15 MG, QD

REACTIONS (2)
  - CUTANEOUS LUPUS ERYTHEMATOSUS [None]
  - NODULE [None]
